FAERS Safety Report 21248159 (Version 9)
Quarter: 2024Q4

REPORT INFORMATION
  Report Type: Report from Study
  Country: CA (occurrence: CA)
  Receive Date: 20220824
  Receipt Date: 20241026
  Transmission Date: 20250115
  Serious: Yes (Death, Life-Threatening, Hospitalization, Other)
  Sender: TAKEDA
  Company Number: CA-TAKEDA-2022TUS057702

PATIENT
  Age: 72 Year
  Sex: Male

DRUGS (10)
  1. IXAZOMIB [Suspect]
     Active Substance: IXAZOMIB
     Indication: Amyloidosis
     Dosage: 3 MILLIGRAM
     Route: 048
     Dates: start: 20190326
  2. IXAZOMIB [Suspect]
     Active Substance: IXAZOMIB
     Indication: Plasma cell myeloma
     Dosage: UNK
     Route: 065
     Dates: start: 20240515
  3. IXAZOMIB [Suspect]
     Active Substance: IXAZOMIB
     Dosage: 3 MILLIGRAM
     Route: 048
  4. VALACYCLOVIR [Concomitant]
     Active Substance: VALACYCLOVIR HYDROCHLORIDE
     Dosage: 500 MILLIGRAM, QD
     Route: 065
  5. ALFACALCIDOL [Concomitant]
     Active Substance: ALFACALCIDOL
     Dosage: 0.25 MICROGRAM, 3/WEEK
     Route: 065
  6. ESCITALOPRAM [Concomitant]
     Active Substance: ESCITALOPRAM OXALATE
     Dosage: 10 MILLIGRAM, QD
     Route: 065
  7. TAMSULOSIN [Concomitant]
     Active Substance: TAMSULOSIN
     Dosage: 0.4 MILLIGRAM, QD
     Route: 065
  8. TUMS [Concomitant]
     Active Substance: CALCIUM CARBONATE
     Dosage: UNK
     Route: 065
  9. MIDODRINE [Concomitant]
     Active Substance: MIDODRINE
     Dosage: UNK
     Route: 065
  10. MIRTAZAPINE [Concomitant]
     Active Substance: MIRTAZAPINE
     Indication: Sleep disorder
     Dosage: 30 MILLIGRAM
     Route: 065

REACTIONS (32)
  - Urosepsis [Fatal]
  - Suicidal ideation [Recovering/Resolving]
  - Troponin increased [Recovering/Resolving]
  - Renal failure [Recovering/Resolving]
  - Cognitive disorder [Unknown]
  - Loss of personal independence in daily activities [Recovering/Resolving]
  - Tangentiality [Recovering/Resolving]
  - Viral upper respiratory tract infection [Recovered/Resolved]
  - Abdominal discomfort [Recovered/Resolved]
  - Mental disorder [Recovered/Resolved]
  - Hypoaesthesia oral [Recovered/Resolved]
  - SARS-CoV-2 test positive [Not Recovered/Not Resolved]
  - Oesophageal candidiasis [Unknown]
  - Unresponsive to stimuli [Unknown]
  - Myocardial infarction [Unknown]
  - Acute kidney injury [Unknown]
  - Major depression [Unknown]
  - Confusional state [Unknown]
  - Tachycardia [Unknown]
  - Blood pressure decreased [Unknown]
  - Vascular pseudoaneurysm [Unknown]
  - Hypophagia [Unknown]
  - Affective disorder [Unknown]
  - Anxiety [Unknown]
  - Psychotic disorder [Unknown]
  - Fall [Unknown]
  - Haematoma [Unknown]
  - Weight decreased [Unknown]
  - Product dose omission in error [Unknown]
  - Off label use [Unknown]
  - Decreased appetite [Unknown]
  - Constipation [Unknown]

NARRATIVE: CASE EVENT DATE: 20220818
